FAERS Safety Report 5895321-X (Version None)
Quarter: 2008Q3

REPORT INFORMATION
  Report Type: 
  Country: None (occurrence: None)
  Receive Date: 20080707
  Receipt Date: 20080707
  Transmission Date: 20090109
  Serious: Yes (Other)
  Sender: FDA-Public Use
  Company Number: None

PATIENT
  Age: 41 Year
  Sex: Female
  Weight: 71.2147 kg

DRUGS (1)
  1. PRO HEALTH NIGHT ORAL RINSE CREST [Suspect]
     Dosage: MOUTHFUL ONCE DENTAL
     Route: 004
     Dates: start: 20080627, end: 20080627

REACTIONS (12)
  - ACTIVITIES OF DAILY LIVING IMPAIRED [None]
  - AGEUSIA [None]
  - CHAPPED LIPS [None]
  - DRY MOUTH [None]
  - ERYTHEMA [None]
  - GLOSSODYNIA [None]
  - HYPOAESTHESIA ORAL [None]
  - HYPOPHAGIA [None]
  - LIP HAEMORRHAGE [None]
  - OROPHARYNGEAL PAIN [None]
  - SWOLLEN TONGUE [None]
  - TONGUE BLISTERING [None]
